FAERS Safety Report 17753928 (Version 1)
Quarter: 2020Q2

REPORT INFORMATION
  Report Type: Spontaneous
  Country: CA (occurrence: CA)
  Receive Date: 20200507
  Receipt Date: 20200507
  Transmission Date: 20200714
  Serious: Yes (Hospitalization, Other)
  Sender: FDA-Public Use
  Company Number: CA-OCTA-NGAM04020CA

PATIENT
  Age: 56 Year
  Sex: Female
  Weight: 118 kg

DRUGS (3)
  1. PANZYGA [Suspect]
     Active Substance: HUMAN IMMUNOGLOBULIN G
     Indication: IMMUNODEFICIENCY COMMON VARIABLE
     Route: 042
     Dates: start: 20200408, end: 20200408
  2. BENADRYL [Concomitant]
     Active Substance: DIPHENHYDRAMINE HYDROCHLORIDE
     Indication: PREMEDICATION
     Route: 048
     Dates: start: 20200408
  3. SOLU - CORTEF [Concomitant]
     Indication: PREMEDICATION
     Route: 042
     Dates: start: 20200408

REACTIONS (13)
  - Throat tightness [Recovered/Resolved]
  - Wheezing [Recovered/Resolved]
  - Use of accessory respiratory muscles [Recovered/Resolved]
  - Tachycardia [Recovered/Resolved]
  - Tachypnoea [Recovered/Resolved]
  - Stridor [Recovered/Resolved]
  - Dysphonia [Recovered/Resolved]
  - Dyspnoea [Recovered/Resolved]
  - Hyperhidrosis [Recovered/Resolved]
  - Hypertension [Recovered/Resolved]
  - Erythema [Recovered/Resolved]
  - Pharyngeal oedema [Recovered/Resolved]
  - Hypersensitivity [Recovered/Resolved]

NARRATIVE: CASE EVENT DATE: 20200408
